FAERS Safety Report 15165305 (Version 3)
Quarter: 2018Q3

REPORT INFORMATION
  Report Type: Spontaneous
  Country: FR (occurrence: FR)
  Receive Date: 20180719
  Receipt Date: 20180920
  Transmission Date: 20181010
  Serious: Yes (Other)
  Sender: FDA-Public Use
  Company Number: FR-MYLANLABS-2018M1052966

PATIENT
  Sex: Male

DRUGS (12)
  1. TRAMADOL. [Suspect]
     Active Substance: TRAMADOL
     Indication: BACK PAIN
     Dosage: IN THE MORNING, IN MIDDAY, IN THE EVENING
  2. SKENAN [Suspect]
     Active Substance: MORPHINE SULFATE
     Dosage: 60 MG, UNK
  3. SKENAN [Suspect]
     Active Substance: MORPHINE SULFATE
     Dosage: IN THE MORNING AND IN THE EVENING
  4. SKENAN [Suspect]
     Active Substance: MORPHINE SULFATE
     Indication: BACK PAIN
     Dosage: 1 DF, Q2D, IN THE MORNING
  5. ACTISKENAN [Suspect]
     Active Substance: MORPHINE SULFATE
     Indication: BACK PAIN
     Dosage: ON THE DAY
  6. ACTISKENAN [Suspect]
     Active Substance: MORPHINE SULFATE
     Dosage: 18 DF, QD, 6 DF IN THE MORNING, 6 DF IN MIDDAY, 6 DF IN THE EVENING
  7. SKENAN [Suspect]
     Active Substance: MORPHINE SULFATE
     Dosage: 60 MG, Q2D, IN THE MORNING AND IN THE EVENING
     Route: 045
  8. SKENAN [Suspect]
     Active Substance: MORPHINE SULFATE
     Indication: BACK PAIN
     Dosage: IN THE MORNING AND IN THE EVENING
  9. PRAZEPAM [Suspect]
     Active Substance: PRAZEPAM
     Indication: MUSCLE RELAXANT THERAPY
     Dosage: IN THE MORNING, IN MIDDAY, IN THE EVENING
  10. ACTISKENAN [Suspect]
     Active Substance: MORPHINE SULFATE
     Dosage: UNK
  11. SKENAN [Suspect]
     Active Substance: MORPHINE SULFATE
     Dosage: 50 MG, QD, AT NIGHT
  12. PRAZEPAM [Suspect]
     Active Substance: PRAZEPAM
     Dosage: 30 MG, QD, 10 MG IN THE MORNING, 10 MG IN MIDDAY, 10 MG IN THE EVENING

REACTIONS (6)
  - Drug abuse [Unknown]
  - Feeling abnormal [Unknown]
  - Drug diversion [Unknown]
  - Intentional product use issue [Unknown]
  - Withdrawal syndrome [Unknown]
  - Drug dependence [Unknown]
